FAERS Safety Report 20357813 (Version 1)
Quarter: 2022Q1

REPORT INFORMATION
  Report Type: Spontaneous
  Country: NL (occurrence: NL)
  Receive Date: 20220120
  Receipt Date: 20220120
  Transmission Date: 20220423
  Serious: Yes (Death, Hospitalization)
  Sender: FDA-Public Use
  Company Number: NL-TEVA-2022-NL-1998952

PATIENT
  Age: 6 Decade
  Sex: Male

DRUGS (5)
  1. DEXAMETHASONE [Suspect]
     Active Substance: DEXAMETHASONE
     Indication: COVID-19
     Dosage: 6 MILLIGRAM DAILY; FROM DAY 1 TO DAY 10 OF ICU ADMISSION
     Route: 065
  2. POSACONAZOLE [Suspect]
     Active Substance: POSACONAZOLE
     Indication: Mucormycosis
     Dosage: FROM DAY 13 TO DAY 23 OF ICU ADMISSION
     Route: 065
  3. TOCILIZUMAB [Suspect]
     Active Substance: TOCILIZUMAB
     Indication: COVID-19
     Dosage: SINGLE DOSE
     Route: 065
  4. AMPHOTERICIN B [Suspect]
     Active Substance: AMPHOTERICIN B
     Indication: Mucormycosis
     Dosage: FROM DAY 12 TO DAY 23 OF ICU ADMISSION
     Route: 065
  5. VORICONAZOLE [Concomitant]
     Active Substance: VORICONAZOLE
     Indication: Bronchopulmonary aspergillosis
     Dosage: FROM DAY 7 TO DAY 12
     Route: 065

REACTIONS (4)
  - Mucormycosis [Fatal]
  - Drug ineffective [Fatal]
  - Off label use [Unknown]
  - Bronchopulmonary aspergillosis [Unknown]
